FAERS Safety Report 7271793-3 (Version None)
Quarter: 2011Q1

REPORT INFORMATION
  Report Type: 
  Country: None (occurrence: None)
  Receive Date: 20110131
  Receipt Date: 20110131
  Transmission Date: 20110831
  Serious: Yes (Hospitalization)
  Sender: FDA-Public Use
  Company Number: None

PATIENT
  Sex: Male
  Weight: 53 kg

DRUGS (6)
  1. VINCRISTINE SULFATE [Suspect]
     Dosage: 8 MG
     Dates: end: 20101217
  2. CYTARABINE [Suspect]
     Dosage: 1760 MG
     Dates: end: 20101206
  3. METHOTREXATE [Suspect]
     Dosage: 60 MG
     Dates: end: 20101117
  4. ONCASPAR [Suspect]
     Dosage: 6325 IU
     Dates: end: 20101110
  5. MERCAPTOPURINE [Suspect]
     Dosage: 2100 MG
     Dates: end: 20101209
  6. CYCLOPHOSPHAMIDE [Suspect]
     Dosage: 2920 MG
     Dates: end: 20101126

REACTIONS (2)
  - BLOOD TRIGLYCERIDES ABNORMAL [None]
  - HYPERBILIRUBINAEMIA [None]
